FAERS Safety Report 13640663 (Version 2)
Quarter: 2017Q2

REPORT INFORMATION
  Report Type: Report from Study
  Country: CO (occurrence: CO)
  Receive Date: 20170611
  Receipt Date: 20170613
  Transmission Date: 20170830
  Serious: Yes (Death)
  Sender: FDA-Public Use
  Company Number: PHHY2017CO085901

PATIENT
  Sex: Male
  Weight: 54 kg

DRUGS (1)
  1. REVOLADE [Suspect]
     Active Substance: ELTROMBOPAG
     Indication: THROMBOCYTOPENIC PURPURA
     Dosage: 25 MG, UNK
     Route: 048
     Dates: start: 20170527, end: 20170603

REACTIONS (10)
  - Diabetes mellitus [Fatal]
  - Lung disorder [Fatal]
  - Thrombocytopenic purpura [Fatal]
  - Concomitant disease aggravated [Fatal]
  - Liver disorder [Fatal]
  - Aplasia [Fatal]
  - General physical health deterioration [Fatal]
  - Multiple organ dysfunction syndrome [Fatal]
  - Pancytopenia [Fatal]
  - Hypertension [Fatal]
